FAERS Safety Report 17009207 (Version 2)
Quarter: 2019Q4

REPORT INFORMATION
  Report Type: Spontaneous
  Country: US (occurrence: US)
  Receive Date: 20191108
  Receipt Date: 20191112
  Transmission Date: 20200122
  Serious: Yes (Hospitalization)
  Sender: FDA-Public Use
  Company Number: US-PFIZER INC-2019476224

PATIENT
  Age: 21 Year
  Sex: Male

DRUGS (1)
  1. BACTERIOSTATIC SODIUM CHLORIDE [Suspect]
     Active Substance: SODIUM CHLORIDE
     Indication: SKIN COSMETIC PROCEDURE
     Dosage: 2 L, UNK (HE SELF-INJECTED TWO LITERS OF NORMAL SALINE, SALINE INFUSION)

REACTIONS (9)
  - Fournier^s gangrene [Unknown]
  - Septic shock [Unknown]
  - Toxic shock syndrome streptococcal [Unknown]
  - Lactic acidosis [Recovering/Resolving]
  - Leukocytosis [Recovering/Resolving]
  - Scrotal pain [Recovering/Resolving]
  - Necrotising fasciitis streptococcal [Unknown]
  - Scrotal oedema [Recovering/Resolving]
  - Intentional product misuse [Unknown]
